FAERS Safety Report 4831563-X (Version None)
Quarter: 2005Q4

REPORT INFORMATION
  Report Type: 
  Country: None (occurrence: None)
  Receive Date: 20051116
  Receipt Date: 20051108
  Transmission Date: 20060501
  Serious: Yes (Hospitalization)
  Sender: FDA-Public Use
  Company Number: 2005153811

PATIENT
  Age: 30 Year
  Sex: Female

DRUGS (3)
  1. DOSTINEX [Suspect]
     Indication: HABITUAL ABORTION
     Dosage: 0.5 MG (INTERVAL: EVERY 10 DAYS), ORAL
     Route: 048
     Dates: start: 20050701
  2. METFORMIN HCL [Concomitant]
  3. DUPHASTON [Concomitant]

REACTIONS (3)
  - ALANINE AMINOTRANSFERASE INCREASED [None]
  - ASPARTATE AMINOTRANSFERASE INCREASED [None]
  - HEPATIC FUNCTION ABNORMAL [None]
